FAERS Safety Report 5076919-8 (Version None)
Quarter: 2006Q3

REPORT INFORMATION
  Report Type: 
  Country: None (occurrence: None)
  Receive Date: 20060810
  Receipt Date: 20060807
  Transmission Date: 20061208
  Serious: Yes (Death, Other)
  Sender: FDA-Public Use
  Company Number: 2006UW15725

PATIENT
  Age: 66 Year
  Sex: Female
  Weight: 49.9 kg

DRUGS (4)
  1. NEXIUM [Suspect]
     Indication: ABDOMINAL PAIN UPPER
     Route: 048
     Dates: start: 20040101
  2. LISINOPRIL [Concomitant]
  3. TRENTAL [Concomitant]
  4. LIPITOR [Concomitant]

REACTIONS (3)
  - BLOOD GLUCOSE DECREASED [None]
  - DEATH [None]
  - THROMBOSIS [None]
